FAERS Safety Report 24758839 (Version 1)
Quarter: 2024Q4

REPORT INFORMATION
  Report Type: Other
  Country: US (occurrence: US)
  Receive Date: 20241220
  Receipt Date: 20241220
  Transmission Date: 20250114
  Serious: Yes (Hospitalization)
  Sender: BIONPHARMA INC.
  Company Number: US-Bion-014542

PATIENT

DRUGS (1)
  1. DEXAMETHASONE [Suspect]
     Active Substance: DEXAMETHASONE
     Indication: Prophylaxis of nausea and vomiting

REACTIONS (2)
  - Misleading laboratory test result [Unknown]
  - Foetal exposure during pregnancy [Unknown]
